FAERS Safety Report 15433848 (Version 1)
Quarter: 2018Q3

REPORT INFORMATION
  Report Type: Spontaneous
  Country: US (occurrence: US)
  Receive Date: 20180921
  Receipt Date: 20180921
  Transmission Date: 20181010
  Serious: Yes (Hospitalization)
  Sender: FDA-Public Use
  Company Number: None

PATIENT
  Age: 45 Year
  Sex: Male
  Weight: 113.3 kg

DRUGS (20)
  1. NORCO 10?325MG [Concomitant]
  2. NIFEDIPINE ER 30MG [Concomitant]
  3. PROBIOTIC ACIDOPHILUS [Concomitant]
     Active Substance: LACTOBACILLUS ACIDOPHILUS
  4. TEMOZOLOMIDE. [Suspect]
     Active Substance: TEMOZOLOMIDE
     Indication: BRAIN NEOPLASM MALIGNANT
     Route: 048
     Dates: start: 20180731
  5. DAPSONE 10MG [Concomitant]
  6. MUCINEX 600MG [Concomitant]
  7. PROAIR HFA [Concomitant]
     Active Substance: ALBUTEROL SULFATE
  8. PROTONIX [Concomitant]
     Active Substance: PANTOPRAZOLE SODIUM
  9. ATIVAN 0.5MG [Concomitant]
  10. WELCHOL 625MG [Concomitant]
  11. FUROSEMIDE 20MG [Concomitant]
     Active Substance: FUROSEMIDE
  12. ZOFRAN [Concomitant]
     Active Substance: ONDANSETRON HYDROCHLORIDE
  13. CYMBALTA [Concomitant]
     Active Substance: DULOXETINE HYDROCHLORIDE
  14. DEXAMETHASONE 4MG [Concomitant]
     Active Substance: DEXAMETHASONE
  15. LANTUS [Concomitant]
     Active Substance: INSULIN GLARGINE
  16. METFORMIN 500MG [Concomitant]
     Active Substance: METFORMIN HYDROCHLORIDE
  17. KEPPRA 750MG [Concomitant]
  18. TRAZODONE [Concomitant]
     Active Substance: TRAZODONE HYDROCHLORIDE
  19. CARVEDILOL 3.125MG [Concomitant]
  20. DOCUSATE 100MG [Concomitant]

REACTIONS (1)
  - Cerebrovascular accident [None]

NARRATIVE: CASE EVENT DATE: 20180912
